FAERS Safety Report 7273452-X (Version None)
Quarter: 2011Q1

REPORT INFORMATION
  Report Type: 
  Country: None (occurrence: None)
  Receive Date: 20110203
  Receipt Date: 20110130
  Transmission Date: 20110831
  Serious: No
  Sender: FDA-Public Use
  Company Number: US-PFIZER INC-2011021249

PATIENT
  Sex: Male
  Weight: 109 kg

DRUGS (5)
  1. KLONOPIN [Concomitant]
     Indication: ANXIETY
     Dosage: UNK
  2. SYNTHROID [Concomitant]
     Indication: HYPOTHYROIDISM
     Dosage: UNK
  3. PRISTIQ [Suspect]
     Indication: DEPRESSION
     Dosage: 50 MG, 1X/DAY
     Route: 048
     Dates: start: 20100101
  4. NEURONTIN [Concomitant]
     Indication: AFFECTIVE DISORDER
     Dosage: UNK
  5. ABILIFY [Concomitant]
     Indication: BIPOLAR DISORDER
     Dosage: UNK

REACTIONS (1)
  - MEDICATION RESIDUE [None]
